FAERS Safety Report 4308092-5 (Version None)
Quarter: 2004Q1

REPORT INFORMATION
  Report Type: 
  Country: None (occurrence: None)
  Receive Date: 20040301
  Receipt Date: 20030506
  Transmission Date: 20041129
  Serious: No
  Sender: FDA-Public Use
  Company Number: US-BRISTOL-MYERS SQUIBB COMPANY-12268678

PATIENT
  Sex: Male
  Weight: 91 kg

DRUGS (5)
  1. GLUCOPHAGE [Suspect]
     Indication: DIABETES MELLITUS
     Dosage: DOSE RANGE:  0-2000 MG DAILY
     Route: 048
  2. GLUCOTROL XL [Concomitant]
  3. LOTENSIN [Concomitant]
  4. WELLBUTRIN [Concomitant]
  5. MULTI-VITAMIN [Concomitant]

REACTIONS (1)
  - DIARRHOEA [None]
